FAERS Safety Report 8763279 (Version 1)
Quarter: 2012Q4

REPORT INFORMATION
  Report Type: 
  Country: ZA (occurrence: ZA)
  Receive Date: 20120831
  Receipt Date: 20120831
  Transmission Date: 20130627
  Serious: Yes (Hospitalization)
  Sender: FDA-Public Use
  Company Number: ZA-SANOFI-AVENTIS-2012SA059191

PATIENT
  Age: 14 Year
  Sex: Female

DRUGS (4)
  1. LANTUS [Suspect]
     Indication: TYPE I DIABETES MELLITUS
     Dosage: Dose:40 unit(s)
     Route: 058
  2. SOLOSTAR [Suspect]
     Indication: DEVICE THERAPY
  3. APIDRA SOLOSTAR [Suspect]
     Indication: TYPE I DIABETES MELLITUS
     Dosage: Dose:42 unit(s)
     Route: 058
  4. SOLOSTAR [Suspect]
     Indication: DEVICE THERAPY

REACTIONS (4)
  - Diabetic ketoacidosis [Recovered/Resolved]
  - Vomiting [Recovered/Resolved]
  - Dehydration [Recovered/Resolved]
  - Reading disorder [None]
